FAERS Safety Report 25245827 (Version 1)
Quarter: 2025Q2

REPORT INFORMATION
  Report Type: Spontaneous
  Country: US (occurrence: US)
  Receive Date: 20250428
  Receipt Date: 20250428
  Transmission Date: 20250716
  Serious: Yes (Hospitalization)
  Sender: MYLAN
  Company Number: US-MYLANLABS-2025M1036090

PATIENT
  Age: 40 Year
  Sex: Male

DRUGS (1)
  1. TACROLIMUS [Suspect]
     Active Substance: TACROLIMUS
     Indication: Immunosuppressant drug therapy

REACTIONS (4)
  - Klebsiella infection [Recovering/Resolving]
  - Liver abscess [Recovering/Resolving]
  - Peritoneal abscess [Recovering/Resolving]
  - Hepatic vein thrombosis [Recovering/Resolving]
